FAERS Safety Report 8914869 (Version 1)
Quarter: 2012Q4

REPORT INFORMATION
  Report Type: 
  Country: FR (occurrence: FR)
  Receive Date: 20121119
  Receipt Date: 20121119
  Transmission Date: 20130627
  Serious: Yes (Hospitalization)
  Sender: FDA-Public Use
  Company Number: FR-ROCHE-1156630

PATIENT
  Age: 65 Year
  Sex: Male

DRUGS (7)
  1. XELODA [Suspect]
     Indication: RECTAL CANCER
     Route: 048
     Dates: start: 201106, end: 201108
  2. AMIODARONE [Concomitant]
  3. DAFALGAN [Concomitant]
  4. AERIUS [Concomitant]
  5. FUROSEMIDE [Concomitant]
  6. PRADAXA [Concomitant]
  7. HEMIGOXINE NATIVELLE [Concomitant]

REACTIONS (1)
  - Scleroderma [Not Recovered/Not Resolved]
